FAERS Safety Report 19477381 (Version 1)
Quarter: 2021Q2

REPORT INFORMATION
  Report Type: Spontaneous
  Country: US (occurrence: US)
  Receive Date: 20210630
  Receipt Date: 20210630
  Transmission Date: 20210717
  Serious: No
  Sender: FDA-Public Use
  Company Number: None

PATIENT
  Age: 45 Year
  Sex: Male
  Weight: 103 kg

DRUGS (1)
  1. FERUMOXYTOL (FERUMOXYTOL 30MG (IRON) ML/INJ) [Suspect]
     Active Substance: FERUMOXYTOL
     Indication: IRON DEFICIENCY
     Route: 042
     Dates: start: 20210519, end: 20210519

REACTIONS (1)
  - Anaphylactic reaction [None]

NARRATIVE: CASE EVENT DATE: 20210519
